FAERS Safety Report 15103385 (Version 12)
Quarter: 2019Q1

REPORT INFORMATION
  Report Type: Report from Study
  Country: US (occurrence: US)
  Receive Date: 20180703
  Receipt Date: 20190308
  Transmission Date: 20190417
  Serious: Yes (Death, Other)
  Sender: FDA-Public Use
  Company Number: US-ASTRAZENECA-2017SF12242

PATIENT
  Age: 26779 Day
  Sex: Female

DRUGS (16)
  1. BETAMETHASONE. [Concomitant]
     Active Substance: BETAMETHASONE
     Dosage: 2 TIMES PER DAY
     Route: 061
  2. MAGIC MOUTHWASH [Concomitant]
     Active Substance: DIPHENHYDRAMINE HYDROCHLORIDE\LIDOCAINE HYDROCHLORIDE\NYSTATIN
     Dosage: 5.0ML AS REQUIRED
     Route: 048
  3. MIRALAX [Concomitant]
     Active Substance: POLYETHYLENE GLYCOL 3350
  4. TRAMADOL. [Concomitant]
     Active Substance: TRAMADOL
  5. IMFINZI [Suspect]
     Active Substance: DURVALUMAB
     Indication: LUNG NEOPLASM MALIGNANT
     Dosage: UNKNOWN
     Route: 042
     Dates: start: 20180226
  6. DEXAMETHASONE. [Concomitant]
     Active Substance: DEXAMETHASONE
     Route: 048
  7. FENTANYL. [Concomitant]
     Active Substance: FENTANYL
     Route: 062
  8. PREDNISONE. [Concomitant]
     Active Substance: PREDNISONE
  9. NORCO [Concomitant]
     Active Substance: ACETAMINOPHEN\HYDROCODONE BITARTRATE
  10. ZOFRAN [Concomitant]
     Active Substance: ONDANSETRON HYDROCHLORIDE
  11. IMFINZI [Suspect]
     Active Substance: DURVALUMAB
     Indication: LUNG NEOPLASM MALIGNANT
     Dosage: UNKNOWN
     Route: 042
     Dates: start: 20171023, end: 20180205
  12. IMFINZI [Suspect]
     Active Substance: DURVALUMAB
     Indication: LUNG NEOPLASM MALIGNANT
     Dosage: UNKNOWN
     Route: 042
     Dates: start: 20180409
  13. DOCUSATE SODIUM. [Concomitant]
     Active Substance: DOCUSATE SODIUM
     Route: 048
  14. IMFINZI [Suspect]
     Active Substance: DURVALUMAB
     Indication: LUNG NEOPLASM MALIGNANT
     Dosage: 670.0MG UNKNOWN
     Route: 042
     Dates: start: 20171016
  15. PREDNISONE. [Concomitant]
     Active Substance: PREDNISONE
  16. COMPAZINE [Concomitant]
     Active Substance: PROCHLORPERAZINE MALEATE
     Indication: NAUSEA
     Route: 048

REACTIONS (31)
  - Rheumatoid arthritis [Recovered/Resolved]
  - Myalgia [Unknown]
  - Back pain [Recovering/Resolving]
  - Hyperglycaemia [Unknown]
  - Limb injury [Unknown]
  - Epistaxis [Unknown]
  - Tachycardia [Unknown]
  - Joint swelling [Unknown]
  - Pain in extremity [Recovering/Resolving]
  - Nausea [Recovered/Resolved]
  - Nasopharyngitis [Unknown]
  - Spinal fracture [Unknown]
  - Neck pain [Unknown]
  - Chest discomfort [Unknown]
  - Fall [Unknown]
  - Cough [Recovering/Resolving]
  - Lung infection [Unknown]
  - Chest pain [Recovered/Resolved]
  - Dyspnoea exertional [Unknown]
  - Bone pain [Unknown]
  - Constipation [Unknown]
  - Malaise [Unknown]
  - Fatigue [Not Recovered/Not Resolved]
  - Pain [Unknown]
  - Back injury [Unknown]
  - Wheezing [Unknown]
  - Cataract [Unknown]
  - Death [Fatal]
  - Blood glucose increased [Unknown]
  - Malaise [Unknown]
  - Product dose omission [Unknown]

NARRATIVE: CASE EVENT DATE: 20171021
